FAERS Safety Report 8821430 (Version 1)
Quarter: 2012Q4

REPORT INFORMATION
  Report Type: 
  Country: JP (occurrence: JP)
  Receive Date: 20121002
  Receipt Date: 20121002
  Transmission Date: 20130627
  Serious: Yes (Other)
  Sender: FDA-Public Use
  Company Number: JP-ELI_LILLY_AND_COMPANY-JP201209005917

PATIENT
  Sex: Female

DRUGS (1)
  1. FORTEO [Suspect]
     Route: 058

REACTIONS (2)
  - Fracture [Not Recovered/Not Resolved]
  - Blood creatinine increased [Unknown]
